FAERS Safety Report 6703717-9 (Version None)
Quarter: 2010Q2

REPORT INFORMATION
  Report Type: 
  Country: None (occurrence: None)
  Receive Date: 20100428
  Receipt Date: 20100422
  Transmission Date: 20101027
  Serious: Yes (Other)
  Sender: FDA-Public Use
  Company Number: 2010SP023223

PATIENT
  Age: 70 Year
  Sex: Male
  Weight: 84 kg

DRUGS (6)
  1. DESLORATADINE [Suspect]
     Indication: DRUG USE FOR UNKNOWN INDICATION
     Dosage: 5 MG;BID;
     Dates: start: 20100409, end: 20100411
  2. AMLODIPIN BESILAT [Concomitant]
  3. MAGNESIUM VERLA [Concomitant]
  4. PROSTADILAT [Concomitant]
  5. ASPIRIN [Concomitant]
  6. SIMVASTATIN [Concomitant]

REACTIONS (3)
  - PRURITUS [None]
  - PYREXIA [None]
  - RASH PUSTULAR [None]
